FAERS Safety Report 6554426-0 (Version None)
Quarter: 2010Q1

REPORT INFORMATION
  Report Type: 
  Country: None (occurrence: None)
  Receive Date: 20100127
  Receipt Date: 20100125
  Transmission Date: 20100710
  Serious: Yes (Life-Threatening, Hospitalization)
  Sender: FDA-Public Use
  Company Number: GXKR2009DE09329

PATIENT
  Age: 66 Year
  Sex: Male
  Weight: 120 kg

DRUGS (9)
  1. ACETYLSALICYLIC ACID SRT [Suspect]
     Indication: CORONARY ARTERY DISEASE
     Dosage: 50 MG, BID
     Dates: start: 20090603, end: 20090611
  2. ACETYLSALICYLIC ACID SRT [Suspect]
     Dosage: 50 MG PER DAY AND 100 MG PER DAY ALTERNATELY
     Route: 048
     Dates: start: 20090611, end: 20090623
  3. AZATHIOPRINE [Suspect]
     Indication: PEMPHIGOID
     Dosage: 75 MG, QD
     Route: 048
     Dates: start: 20090603, end: 20090623
  4. CELEBREX [Suspect]
     Indication: OSTEOARTHRITIS
     Dosage: 200 MG, QD
     Route: 048
     Dates: start: 20080101, end: 20090623
  5. CARVEDILOL [Concomitant]
  6. FLUVASTATIN [Concomitant]
  7. KARVEZIDE [Concomitant]
  8. PANTOPRAZOLE [Concomitant]
  9. PREDNISOLON [Concomitant]

REACTIONS (1)
  - RENAL FAILURE ACUTE [None]
